FAERS Safety Report 7919270-8 (Version None)
Quarter: 2011Q4

REPORT INFORMATION
  Report Type: 
  Country: None (occurrence: None)
  Receive Date: 20111114
  Receipt Date: 20111031
  Transmission Date: 20120403
  Serious: Yes (Hospitalization)
  Sender: FDA-Public Use
  Company Number: 11-001181

PATIENT
  Sex: Female

DRUGS (9)
  1. ESTRADIOL (ESTRADIOL VALERATE) [Concomitant]
  2. CRANBERRY (VACCINIUM MACROCARPON) [Concomitant]
  3. ESTRACE [Suspect]
     Indication: VULVOVAGINAL BURNING SENSATION
     Dosage: 1/2 APPLICATORFUL, BIW, VAGINAL
     Route: 067
     Dates: start: 20110201, end: 20111028
  4. ESTRACE [Suspect]
     Indication: VULVOVAGINAL DISCOMFORT
     Dosage: 1/2 APPLICATORFUL, BIW, VAGINAL
     Route: 067
     Dates: start: 20110201, end: 20111028
  5. CANDIBACTIN [Concomitant]
  6. FISH OIL (FISH OIL) [Concomitant]
  7. MULTIVITAMINS (ASCORBIC ACID, ERGOCALCIFEROL, FOLIC ACID, NICOTINAMIDE [Concomitant]
  8. LACTOBACILLUS ACIDOPHILUS (LACTOBACILLUS ACIDOPHILUS) [Concomitant]
  9. FLAXSEED OIL (LINUM USITATISSIMUM SEED OIL) [Concomitant]

REACTIONS (7)
  - HAEMORRHOIDS [None]
  - VULVOVAGINAL DISCOMFORT [None]
  - URINARY TRACT INFECTION [None]
  - VULVOVAGINAL MYCOTIC INFECTION [None]
  - VULVOVAGINAL BURNING SENSATION [None]
  - VAGINAL INFLAMMATION [None]
  - DIARRHOEA HAEMORRHAGIC [None]
